FAERS Safety Report 23096834 (Version 14)
Quarter: 2025Q1

REPORT INFORMATION
  Report Type: Spontaneous
  Country: US (occurrence: US)
  Receive Date: 20231023
  Receipt Date: 20250203
  Transmission Date: 20250408
  Serious: Yes (Other)
  Sender: PFIZER
  Company Number: US-PFIZER INC-PV202300173159

PATIENT
  Age: 64 Year
  Sex: Female

DRUGS (1)
  1. IBRANCE [Suspect]
     Active Substance: PALBOCICLIB
     Indication: Breast cancer female
     Route: 048
     Dates: end: 2024

REACTIONS (24)
  - Second primary malignancy [Unknown]
  - Ovarian cancer [Unknown]
  - Ovarian cyst [Unknown]
  - Salpingo-oophorectomy [Unknown]
  - Neoplasm progression [Unknown]
  - Fatigue [Not Recovered/Not Resolved]
  - Glossodynia [Unknown]
  - Eructation [Unknown]
  - Tongue coated [Unknown]
  - White blood cell count decreased [Unknown]
  - Asthenia [Unknown]
  - Sluggishness [Unknown]
  - Malaise [Unknown]
  - Pyrexia [Unknown]
  - Injection site warmth [Unknown]
  - Arthropod bite [Unknown]
  - Insomnia [Recovering/Resolving]
  - Nausea [Unknown]
  - Pharyngitis [Unknown]
  - Mucosal inflammation [Unknown]
  - Laryngitis [Unknown]
  - Tongue disorder [Recovering/Resolving]
  - Sinusitis [Unknown]
  - Oral pain [Recovered/Resolved]

NARRATIVE: CASE EVENT DATE: 20231115
